APPROVED DRUG PRODUCT: MORPHINE SULFATE
Active Ingredient: MORPHINE SULFATE
Strength: 100MG/5ML
Dosage Form/Route: SOLUTION;ORAL
Application: N022195 | Product #003 | TE Code: AA
Applicant: HIKMA PHARMACEUTICALS USA INC
Approved: Jan 25, 2010 | RLD: Yes | RS: Yes | Type: RX